FAERS Safety Report 10149044 (Version 1)
Quarter: 2014Q2

REPORT INFORMATION
  Report Type: Spontaneous
  Country: US (occurrence: None)
  Receive Date: 20140429
  Receipt Date: 20140429
  Transmission Date: 20141212
  Serious: Yes (Other)
  Sender: FDA-Public Use
  Company Number: 001717697A

PATIENT
  Age: 57 Year
  Sex: Female

DRUGS (7)
  1. MEANINGFUL BEAUTY ANTIOXIDANT DAY CREME WITH SPF 20 [Suspect]
     Route: 061
     Dates: start: 20131230, end: 20140103
  2. MEANINGFUL BEAUTY SKIN BRIGHTENING DECOLLETE AND NECK TREATMENT WITH SPF 15 [Suspect]
     Route: 061
     Dates: start: 20131230, end: 20140103
  3. GABAPENTIN [Concomitant]
  4. OXYCODONE [Concomitant]
  5. METOPROLOL [Concomitant]
  6. MULTIVITAMINS [Concomitant]
  7. OIL OF OLAY [Concomitant]

REACTIONS (2)
  - Application site erythema [None]
  - Application site pain [None]
